FAERS Safety Report 22189005 (Version 1)
Quarter: 2023Q2

REPORT INFORMATION
  Report Type: Report from Study
  Country: US (occurrence: None)
  Receive Date: 20230409
  Receipt Date: 20230409
  Transmission Date: 20230722
  Serious: Yes (Death)
  Sender: FDA-Public Use
  Company Number: 2023A080690

PATIENT
  Sex: Female

DRUGS (1)
  1. TAGRISSO [Suspect]
     Active Substance: OSIMERTINIB
     Route: 048

REACTIONS (7)
  - Abdominal pain upper [Fatal]
  - Diarrhoea [Fatal]
  - Fatigue [Fatal]
  - Dizziness [Fatal]
  - Vision blurred [Fatal]
  - Decreased appetite [Fatal]
  - Intentional dose omission [Fatal]
